FAERS Safety Report 8369988-0 (Version None)
Quarter: 2012Q2

REPORT INFORMATION
  Report Type: 
  Country: None (occurrence: None)
  Receive Date: 20120518
  Receipt Date: 20120511
  Transmission Date: 20120825
  Serious: Yes (Hospitalization)
  Sender: FDA-Public Use
  Company Number: JP-B.I. PHARMACEUTICALS,INC./RIDGEFIELD-2012-BP-06926NB

PATIENT

DRUGS (2)
  1. TRAZENTA [Suspect]
     Dosage: 5 MG
     Route: 048
     Dates: start: 20120410
  2. TRAZENTA [Suspect]
     Indication: HYPERGLYCAEMIA
     Dosage: 5 MG
     Route: 048

REACTIONS (3)
  - WRONG DRUG ADMINISTERED [None]
  - ACCIDENTAL EXPOSURE [None]
  - HYPOGLYCAEMIA [None]
